FAERS Safety Report 11946168 (Version 2)
Quarter: 2016Q1

REPORT INFORMATION
  Report Type: Report from Study
  Country: US (occurrence: US)
  Receive Date: 20160125
  Receipt Date: 20160129
  Transmission Date: 20160526
  Serious: No
  Sender: FDA-Public Use
  Company Number: US-AMGEN-USASL2015140711

PATIENT
  Age: 68 Year
  Sex: Male

DRUGS (1)
  1. REPATHA [Suspect]
     Active Substance: EVOLOCUMAB
     Indication: PRODUCT USED FOR UNKNOWN INDICATION
     Dosage: 140 MG, Q2WK
     Route: 065
     Dates: start: 201512

REACTIONS (9)
  - Dry mouth [Unknown]
  - Eye pruritus [Unknown]
  - Dry throat [Unknown]
  - Nasal dryness [Unknown]
  - Dry eye [Unknown]
  - Injection site pain [Unknown]
  - Arthritis [Unknown]
  - Musculoskeletal pain [Unknown]
  - Back pain [Unknown]
